FAERS Safety Report 25135259 (Version 1)
Quarter: 2025Q1

REPORT INFORMATION
  Report Type: Spontaneous
  Country: US (occurrence: US)
  Receive Date: 20250328
  Receipt Date: 20250328
  Transmission Date: 20250408
  Serious: No
  Sender: NOVARTIS
  Company Number: US-002147023-NVSC2025US049418

PATIENT
  Age: 84 Year
  Sex: Female
  Weight: 52.16 kg

DRUGS (2)
  1. INCLISIRAN [Suspect]
     Active Substance: INCLISIRAN
     Indication: Blood cholesterol increased
     Route: 065
     Dates: start: 20240812
  2. INCLISIRAN [Suspect]
     Active Substance: INCLISIRAN
     Route: 065
     Dates: start: 20241118

REACTIONS (6)
  - Abdominal discomfort [Not Recovered/Not Resolved]
  - Constipation [Unknown]
  - Nausea [Unknown]
  - Vomiting [Unknown]
  - Diarrhoea [Unknown]
  - Gastrointestinal injury [Unknown]

NARRATIVE: CASE EVENT DATE: 20241101
